FAERS Safety Report 14594318 (Version 1)
Quarter: 2018Q1

REPORT INFORMATION
  Report Type: Report from Study
  Country: US (occurrence: US)
  Receive Date: 20180302
  Receipt Date: 20180302
  Transmission Date: 20180509
  Serious: No
  Sender: FDA-Public Use
  Company Number: US-AMGEN-USASL2017067310

PATIENT
  Age: 31 Year
  Sex: Male

DRUGS (2)
  1. ZEMPLAR [Concomitant]
     Active Substance: PARICALCITOL
     Dosage: 1 MUG, UNK
  2. SENSIPAR [Suspect]
     Active Substance: CINACALCET HYDROCHLORIDE
     Indication: RENAL FAILURE
     Dosage: UNK
     Route: 065

REACTIONS (2)
  - Off label use [Unknown]
  - Blood parathyroid hormone increased [Unknown]
